FAERS Safety Report 12615978 (Version 16)
Quarter: 2017Q3

REPORT INFORMATION
  Report Type: Report from Study
  Country: HU (occurrence: HU)
  Receive Date: 20160802
  Receipt Date: 20170706
  Transmission Date: 20171127
  Serious: Yes (Death, Life-Threatening, Hospitalization)
  Sender: FDA-Public Use
  Company Number: HU-PFIZER INC-2016357124

PATIENT
  Age: 67 Year
  Sex: Male
  Weight: 74 kg

DRUGS (9)
  1. DOCETAXEL. [Suspect]
     Active Substance: DOCETAXEL
     Dosage: UNK
  2. MEGACE [Concomitant]
     Active Substance: MEGESTROL ACETATE
     Indication: DECREASED APPETITE
     Dosage: 20 ML, 1X/DAY
     Route: 048
     Dates: start: 20160706, end: 20160716
  3. DOCETAXEL. [Suspect]
     Active Substance: DOCETAXEL
     Indication: NON-SMALL CELL LUNG CANCER
     Dosage: 140 MG, CYCLIC(ONCE EVERY 3 WEEKS)
     Route: 042
     Dates: start: 20160712, end: 20160712
  4. APRANAX /00256201/ [Concomitant]
     Active Substance: NAPROXEN
     Indication: PNEUMONIA
     Dosage: 550 MG, 2X/DAY
     Route: 048
     Dates: start: 20150606, end: 20160716
  5. DOCETAXEL. [Suspect]
     Active Substance: DOCETAXEL
     Dosage: UNK
  6. XARELTO [Concomitant]
     Active Substance: RIVAROXABAN
     Indication: ATRIAL FIBRILLATION
     Dosage: 20 MG, 1X/DAY
     Route: 048
     Dates: start: 20150722, end: 20160716
  7. METOPROLOL. [Concomitant]
     Active Substance: METOPROLOL
     Indication: ATRIAL FIBRILLATION
     Dosage: 100 MG IN THE MORNING AND 50 MG IN THE EVENING
     Route: 048
     Dates: start: 20150709, end: 20160716
  8. DOCETAXEL. [Suspect]
     Active Substance: DOCETAXEL
     Dosage: UNK
  9. DOCETAXEL. [Suspect]
     Active Substance: DOCETAXEL
     Dosage: UNK

REACTIONS (3)
  - Dehydration [Fatal]
  - Hypotension [Recovered/Resolved with Sequelae]
  - Diarrhoea [Recovered/Resolved]

NARRATIVE: CASE EVENT DATE: 20160713
